FAERS Safety Report 4404752-6 (Version None)
Quarter: 2004Q3

REPORT INFORMATION
  Report Type: 
  Country: None (occurrence: None)
  Receive Date: 20040722
  Receipt Date: 20040715
  Transmission Date: 20050211
  Serious: Yes (Other)
  Sender: FDA-Public Use
  Company Number: US-BRISTOL-MYERS SQUIBB COMPANY-12642013

PATIENT
  Age: 60 Year
  Sex: Female

DRUGS (5)
  1. ESTRACE [Suspect]
     Indication: HORMONE REPLACEMENT THERAPY
     Dates: start: 20000401, end: 20001001
  2. PREMPRO [Suspect]
     Indication: HORMONE REPLACEMENT THERAPY
     Dates: start: 19961116, end: 20020401
  3. PREMARIN [Suspect]
     Indication: HORMONE REPLACEMENT THERAPY
     Dates: start: 19880101, end: 19961116
  4. PROVERA [Suspect]
     Indication: HORMONE REPLACEMENT THERAPY
     Dates: start: 19880101, end: 19961116
  5. PROMETRIUM [Suspect]
     Indication: HORMONE REPLACEMENT THERAPY
     Dates: start: 20000401, end: 20001001

REACTIONS (1)
  - BREAST CANCER [None]
